FAERS Safety Report 6155185-6 (Version None)
Quarter: 2009Q2

REPORT INFORMATION
  Report Type: 
  Country: None (occurrence: None)
  Receive Date: 20090415
  Receipt Date: 20090409
  Transmission Date: 20091009
  Serious: Yes (Other)
  Sender: FDA-Public Use
  Company Number: CN-ALLERGAN-0904982US

PATIENT

DRUGS (3)
  1. BIMATOPROST UNK [Suspect]
     Indication: DRUG USE FOR UNKNOWN INDICATION
  2. LATANOPROST [Suspect]
     Indication: DRUG USE FOR UNKNOWN INDICATION
  3. TRAVOPROST [Suspect]
     Indication: DRUG USE FOR UNKNOWN INDICATION

REACTIONS (2)
  - ALANINE AMINOTRANSFERASE INCREASED [None]
  - ASPARTATE AMINOTRANSFERASE INCREASED [None]
